FAERS Safety Report 15321150 (Version 1)
Quarter: 2018Q3

REPORT INFORMATION
  Report Type: Spontaneous
  Country: US (occurrence: US)
  Receive Date: 20180827
  Receipt Date: 20180827
  Transmission Date: 20181010
  Serious: No
  Sender: FDA-Public Use
  Company Number: US-BEH-2018094203

PATIENT
  Sex: Female
  Weight: 65.76 kg

DRUGS (4)
  1. VELTIN [Concomitant]
     Active Substance: CLINDAMYCIN PHOSPHATE\TRETINOIN
  2. EPINEPHRINE. [Concomitant]
     Active Substance: EPINEPHRINE
  3. HAEGARDA [Suspect]
     Active Substance: HUMAN C1-ESTERASE INHIBITOR
     Indication: HEREDITARY ANGIOEDEMA
     Dosage: 4000 IU, BIW
     Route: 058
     Dates: start: 20180305
  4. HAEGARDA [Suspect]
     Active Substance: HUMAN C1-ESTERASE INHIBITOR
     Indication: PROPHYLAXIS

REACTIONS (1)
  - Acne [Unknown]
